FAERS Safety Report 12606333 (Version 4)
Quarter: 2016Q4

REPORT INFORMATION
  Report Type: Spontaneous
  Country: US (occurrence: US)
  Receive Date: 20160729
  Receipt Date: 20161128
  Transmission Date: 20170207
  Serious: No
  Sender: FDA-Public Use
  Company Number: US-PFIZER INC-2016363487

PATIENT
  Age: 76 Year
  Sex: Male
  Weight: 88.45 kg

DRUGS (13)
  1. ALLOPURINOL. [Concomitant]
     Active Substance: ALLOPURINOL
     Dosage: 300 MG, 1X/DAY (1 TAB(S))
     Route: 048
  2. PROSCAR [Concomitant]
     Active Substance: FINASTERIDE
     Indication: PROSTATE CANCER
     Dosage: 5 MG, 1X/DAY (1 TAB(S))
     Route: 048
  3. LIPITOR [Concomitant]
     Active Substance: ATORVASTATIN CALCIUM
     Dosage: 40 MG, 1X/DAY (1 TAB(S) AT BEDTIME)
     Route: 048
  4. NEXIUM [Concomitant]
     Active Substance: ESOMEPRAZOLE MAGNESIUM
     Indication: GASTROOESOPHAGEAL REFLUX DISEASE
     Dosage: 20 MG, 1X/DAY (1 CAP(S))
     Route: 048
  5. TOPROL XL [Concomitant]
     Active Substance: METOPROLOL SUCCINATE
     Indication: BLOOD PRESSURE MEASUREMENT
  6. COLACE [Concomitant]
     Active Substance: DOCUSATE SODIUM
     Indication: FAECES SOFT
     Dosage: 100 MG, AS NEEDED (3 TIMES A DAY)
     Route: 048
  7. IBRANCE [Suspect]
     Active Substance: PALBOCICLIB
     Dosage: 125MG CAPSULE BY MOUTH FOR 21 DAYS, THEN OFF FOR 7 DAYS
     Route: 048
     Dates: start: 20161106
  8. FLOMAX [Concomitant]
     Active Substance: TAMSULOSIN HYDROCHLORIDE
     Indication: DYSURIA
     Dosage: 0.4 MG, 1X/DAY (1 CAP(S))
     Route: 048
  9. DIOVAN HCT [Concomitant]
     Active Substance: HYDROCHLOROTHIAZIDE\VALSARTAN
     Indication: HYPERTENSION
     Dosage: [DIOVAN- 320MG]/ [HCT- 25MG) 1X/DAY (1 TAB(S)
     Route: 048
  10. TOPROL XL [Concomitant]
     Active Substance: METOPROLOL SUCCINATE
     Indication: PULMONARY HYPERTENSION
     Dosage: 50 MG, 2X/DAY (1 TAB(S))
     Route: 048
  11. ACYCLOVIR. [Concomitant]
     Active Substance: ACYCLOVIR
     Dosage: 400 MG, 1X/DAY (1 TAB(S))
     Route: 048
  12. IBRANCE [Suspect]
     Active Substance: PALBOCICLIB
     Indication: LIPOSARCOMA
     Dosage: 125 MG, 1X/DAY
     Route: 048
     Dates: start: 20160329
  13. METOPROLOL. [Concomitant]
     Active Substance: METOPROLOL
     Indication: BLOOD PRESSURE MEASUREMENT
     Dosage: 50 MG, 2X/DAY

REACTIONS (9)
  - Neoplasm progression [Unknown]
  - Dizziness [Not Recovered/Not Resolved]
  - Feeling abnormal [Unknown]
  - Platelet disorder [Not Recovered/Not Resolved]
  - Flushing [Unknown]
  - Nausea [Not Recovered/Not Resolved]
  - Blood count abnormal [Not Recovered/Not Resolved]
  - Neutrophil count abnormal [Not Recovered/Not Resolved]
  - Product use issue [Unknown]

NARRATIVE: CASE EVENT DATE: 201603
